FAERS Safety Report 20211178 (Version 1)
Quarter: 2021Q4

REPORT INFORMATION
  Report Type: Report from Study
  Country: IN (occurrence: None)
  Receive Date: 20211221
  Receipt Date: 20211221
  Transmission Date: 20220304
  Serious: Yes (Death)
  Sender: FDA-Public Use
  Company Number: 2021A886117

PATIENT
  Age: 76 Year
  Sex: Male
  Weight: 64 kg

DRUGS (1)
  1. TAGRISSO [Suspect]
     Active Substance: OSIMERTINIB
     Indication: Product use in unapproved indication
     Route: 048
     Dates: start: 20210325, end: 20210928

REACTIONS (1)
  - Death [Fatal]

NARRATIVE: CASE EVENT DATE: 20210325
